FAERS Safety Report 8813485 (Version 1)
Quarter: 2012Q4

REPORT INFORMATION
  Report Type: 
  Country: US (occurrence: US)
  Receive Date: 20120927
  Receipt Date: 20120927
  Transmission Date: 20130627
  Serious: No
  Sender: FDA-Public Use
  Company Number: US-AMGEN-USASP2012045926

PATIENT
  Age: 82 Year
  Sex: Female
  Weight: 57.14 kg

DRUGS (2)
  1. PROLIA [Suspect]
     Indication: OSTEOPOROSIS
     Dosage: 60 mg/ml, q6mo
     Route: 058
     Dates: start: 20110908
  2. PROLIA [Suspect]
     Dosage: 60 mg/ml, q6mo
     Route: 058
     Dates: start: 20120329, end: 20120719

REACTIONS (8)
  - Burning sensation [Unknown]
  - Paraesthesia [Unknown]
  - Spinal pain [Unknown]
  - Pain [Not Recovered/Not Resolved]
  - Gastrointestinal disorder [Unknown]
  - Back pain [Unknown]
  - Asthenia [Unknown]
  - Musculoskeletal pain [Unknown]
